FAERS Safety Report 4487347-8 (Version None)
Quarter: 2004Q4

REPORT INFORMATION
  Report Type: 
  Country: None (occurrence: None)
  Receive Date: 20041027
  Receipt Date: 20041010
  Transmission Date: 20050328
  Serious: Yes (Hospitalization, Other)
  Sender: FDA-Public Use
  Company Number: BR-MERCK-0410BRA00475

PATIENT
  Age: 38 Year
  Sex: Female

DRUGS (1)
  1. VIOXX [Suspect]
     Indication: CARPAL TUNNEL SYNDROME
     Route: 048
     Dates: start: 20010401, end: 20011001

REACTIONS (3)
  - HYPOAESTHESIA [None]
  - PERIPHERAL EMBOLISM [None]
  - RENAL DISORDER [None]
